FAERS Safety Report 4756116-3 (Version None)
Quarter: 2005Q3

REPORT INFORMATION
  Report Type: 
  Country: None (occurrence: None)
  Receive Date: 20050825
  Receipt Date: 20050711
  Transmission Date: 20060218
  Serious: Yes (Other)
  Sender: FDA-Public Use
  Company Number: WAES 0507USA01367

PATIENT
  Age: 60 Year
  Sex: Female

DRUGS (2)
  1. VYTORIN [Suspect]
     Indication: BLOOD CHOLESTEROL INCREASED
     Dosage: 10-20MG/DAILY/PO
     Route: 048
     Dates: start: 20050601, end: 20050701
  2. KETOCONAZOLE [Concomitant]

REACTIONS (1)
  - RHABDOMYOLYSIS [None]
